FAERS Safety Report 9408953 (Version 1)
Quarter: 2013Q3

REPORT INFORMATION
  Report Type: Spontaneous
  Country: SE (occurrence: SE)
  Receive Date: 20130719
  Receipt Date: 20130719
  Transmission Date: 20140515
  Serious: Yes (Other)
  Sender: FDA-Public Use
  Company Number: SE-RANBAXY-2013RR-71409

PATIENT
  Age: 85 Year
  Sex: Male

DRUGS (1)
  1. SERTRALINE [Suspect]
     Indication: PRODUCT USED FOR UNKNOWN INDICATION
     Dosage: UNK
     Route: 065

REACTIONS (7)
  - Fatigue [Unknown]
  - Dehydration [Unknown]
  - Hypernatraemia [Unknown]
  - Anxiety [Unknown]
  - Hallucination [Unknown]
  - Confusional state [Unknown]
  - Micturition disorder [Unknown]
